FAERS Safety Report 10038143 (Version 1)
Quarter: 2014Q1

REPORT INFORMATION
  Report Type: Spontaneous
  Country: US (occurrence: None)
  Receive Date: 20140325
  Receipt Date: 20140325
  Transmission Date: 20141002
  Serious: Yes (Other)
  Sender: FDA-Public Use
  Company Number: None

PATIENT
  Sex: 0
  Weight: 85 kg

DRUGS (2)
  1. ROCURONIUM [Suspect]
     Indication: PARALYSIS
  2. ROCURONIUM [Suspect]
     Indication: SURGERY

REACTIONS (2)
  - Drug ineffective [None]
  - Muscle twitching [None]
